FAERS Safety Report 24278806 (Version 1)
Quarter: 2024Q3

REPORT INFORMATION
  Report Type: Spontaneous
  Country: US (occurrence: US)
  Receive Date: 20240903
  Receipt Date: 20240903
  Transmission Date: 20241017
  Serious: Yes (Hospitalization, Other)
  Sender: CIVICA
  Company Number: US-CIVICARX-2024-US-046574

PATIENT
  Age: 59 Year
  Sex: Female

DRUGS (1)
  1. BUPIVACAINE HYDROCHLORIDE [Suspect]
     Active Substance: BUPIVACAINE HYDROCHLORIDE
     Indication: Occipital neuralgia
     Dosage: UNKNOWN

REACTIONS (2)
  - Acute myocardial infarction [Recovered/Resolved]
  - Left ventricular dysfunction [Recovered/Resolved]
